FAERS Safety Report 5218449-6 (Version None)
Quarter: 2007Q1

REPORT INFORMATION
  Report Type: 
  Country: None (occurrence: None)
  Receive Date: 20070122
  Receipt Date: 20070108
  Transmission Date: 20070707
  Serious: Yes (Disabling)
  Sender: FDA-Public Use
  Company Number: S06-DEN-02659-01

PATIENT
  Age: 39 Year
  Sex: Female
  Weight: 64 kg

DRUGS (4)
  1. CITALOPRAM HYDROBROMIDE [Suspect]
     Indication: DEPRESSION
     Dosage: 20 MG QD PO
     Route: 048
  2. CITALOPRAM HYDROBROMIDE [Suspect]
     Indication: DEPRESSION
  3. SERTRALINE [Suspect]
     Indication: DEPRESSION
     Dosage: 20 MG QD PO
     Route: 048
     Dates: start: 20060315, end: 20060609
  4. DICLON (DICLOFENAC SODIUM) [Concomitant]

REACTIONS (3)
  - ORAL MUCOSAL BLISTERING [None]
  - PYREXIA [None]
  - VAGINAL MUCOSAL BLISTERING [None]
